FAERS Safety Report 15084673 (Version 1)
Quarter: 2018Q2

REPORT INFORMATION
  Report Type: Spontaneous
  Country: US (occurrence: US)
  Receive Date: 20180608
  Receipt Date: 20180608
  Transmission Date: 20180711
  Serious: Yes (Disabling)
  Sender: FDA-Public Use
  Company Number: None

PATIENT
  Age: 51 Year
  Sex: Female
  Weight: 94.5 kg

DRUGS (5)
  1. MULTI VITAMIN [Concomitant]
     Active Substance: VITAMINS
  2. OMEPRAZOLE. [Concomitant]
     Active Substance: OMEPRAZOLE
  3. MAGNESIUM [Suspect]
     Active Substance: MAGNESIUM
  4. INFLECTRA [Suspect]
     Active Substance: INFLIXIMAB-DYYB
     Indication: COLITIS ULCERATIVE
     Dosage: ?          QUANTITY:1 3 HOURS;OTHER FREQUENCY:8 WEEKS;?
     Route: 042
     Dates: start: 20171218, end: 20180416
  5. AZATHIOPRINE. [Concomitant]
     Active Substance: AZATHIOPRINE

REACTIONS (7)
  - Musculoskeletal pain [None]
  - Bone pain [None]
  - Pain in extremity [None]
  - Musculoskeletal chest pain [None]
  - Neck pain [None]
  - Arthralgia [None]
  - Product substitution issue [None]

NARRATIVE: CASE EVENT DATE: 20180209
